FAERS Safety Report 9314245 (Version 2)
Quarter: 2013Q2

REPORT INFORMATION
  Report Type: Report from Study
  Country: CA (occurrence: CA)
  Receive Date: 20130529
  Receipt Date: 20130607
  Transmission Date: 20140414
  Serious: Yes (Other)
  Sender: FDA-Public Use
  Company Number: PHHY2013CA053562

PATIENT
  Sex: Female

DRUGS (1)
  1. SANDOSTATIN LAR [Suspect]
     Indication: CARCINOID TUMOUR OF THE SMALL BOWEL
     Dosage: 20 MG, EVERY FOUR WEEKS
     Route: 030
     Dates: start: 20121219

REACTIONS (3)
  - Osteoporosis [Unknown]
  - Injection site swelling [Unknown]
  - Injection site pain [Unknown]
